FAERS Safety Report 5928639-2 (Version None)
Quarter: 2008Q4

REPORT INFORMATION
  Report Type: 
  Country: None (occurrence: None)
  Receive Date: 20081023
  Receipt Date: 20081017
  Transmission Date: 20090506
  Serious: No
  Sender: FDA-Public Use
  Company Number: US-B.I. PHARMACEUTICALS,INC./RIDGEFIELD-2008-BP-16037BP

PATIENT
  Age: 78 Year
  Sex: Male

DRUGS (2)
  1. ZANTAC 150 [Suspect]
     Indication: CONSTIPATION
     Dosage: 300MG
     Route: 048
     Dates: start: 20081015
  2. MIRALAX [Concomitant]
     Indication: UTERINE HYPOTONUS
     Route: 048
     Dates: start: 20010101

REACTIONS (2)
  - ACCIDENTAL OVERDOSE [None]
  - CONSTIPATION [None]
